FAERS Safety Report 4603820-3 (Version None)
Quarter: 2005Q1

REPORT INFORMATION
  Report Type: 
  Country: None (occurrence: None)
  Receive Date: 20050310
  Receipt Date: 20050225
  Transmission Date: 20050727
  Serious: Yes (Other)
  Sender: FDA-Public Use
  Company Number: PHEH2005US02484

PATIENT
  Age: 24 Year
  Sex: Male

DRUGS (3)
  1. ELIDEL [Suspect]
     Indication: ECZEMA
     Dosage: UNK, UNK
     Route: 061
     Dates: start: 20011201, end: 20041201
  2. ALBUTEROL [Concomitant]
  3. ANTI-HISTAMINE TAB [Concomitant]

REACTIONS (3)
  - ANAPLASTIC LARGE CELL LYMPHOMA T- AND NULL-CELL TYPES [None]
  - LOCALISED OEDEMA [None]
  - SKIN ULCER [None]
